FAERS Safety Report 4898307-7 (Version None)
Quarter: 2006Q1

REPORT INFORMATION
  Report Type: 
  Country: None (occurrence: None)
  Receive Date: 20060106
  Receipt Date: 20041206
  Transmission Date: 20060701
  Serious: Yes (Other)
  Sender: FDA-Public Use
  Company Number: HQWYE885910DEC04

PATIENT
  Age: 41 Year
  Sex: Male
  Weight: 83.99 kg

DRUGS (1)
  1. PRIMATENE MIST [Suspect]
     Indication: ASTHMA
     Dosage: 1 PUFF 1X PER 1 DAY, INHALATION
     Route: 055
     Dates: start: 20041202, end: 20041202

REACTIONS (2)
  - PHARYNGOLARYNGEAL PAIN [None]
  - RETCHING [None]
